FAERS Safety Report 22383652 (Version 4)
Quarter: 2024Q1

REPORT INFORMATION
  Report Type: Other
  Country: US (occurrence: None)
  Receive Date: 20230530
  Receipt Date: 20240123
  Transmission Date: 20240410
  Serious: Yes (Hospitalization)
  Sender: FDA-Public Use
  Company Number: US-ROCHE-3357867

PATIENT
  Age: 63 Year
  Sex: Female

DRUGS (1)
  1. ESBRIET [Suspect]
     Active Substance: PIRFENIDONE
     Indication: Idiopathic pulmonary fibrosis
     Dosage: TAKE 1 TABLET BY MOUTH TWICE A DAY AT THE SAME TIME EACH DAY
     Route: 048

REACTIONS (10)
  - Asthenia [Unknown]
  - Cardiac failure [Unknown]
  - Blood potassium increased [Unknown]
  - Neoplasm [Unknown]
  - Blood potassium decreased [Unknown]
  - Blood magnesium decreased [Unknown]
  - Fall [Unknown]
  - Muscular weakness [Unknown]
  - Off label use [Unknown]
  - Thrombosis [Unknown]
